FAERS Safety Report 7149374-1 (Version None)
Quarter: 2010Q4

REPORT INFORMATION
  Report Type: 
  Country: None (occurrence: None)
  Receive Date: 20101209
  Receipt Date: 20101102
  Transmission Date: 20110411
  Serious: No
  Sender: FDA-Public Use
  Company Number: US-KINGPHARMUSA00001-K201001349

PATIENT
  Age: 57 Year
  Sex: Female
  Weight: 84.807 kg

DRUGS (6)
  1. EMBEDA [Suspect]
     Indication: PAIN IN EXTREMITY
     Dosage: 20 MG AM AND 40 MG HS
     Dates: start: 20101028, end: 20101028
  2. EMBEDA [Suspect]
     Dosage: 20 MG, QD
     Dates: start: 20100928, end: 20101002
  3. EMBEDA [Suspect]
     Dosage: 20 MG, BID
     Dates: start: 20101003, end: 20101027
  4. SULFASALAZINE [Concomitant]
     Indication: ARTHRITIS
     Dosage: 500 MG, BID
     Route: 048
  5. ZOLOFT [Concomitant]
     Dosage: 100 MG, QD
     Route: 048
     Dates: start: 20101019
  6. PERCOCET [Concomitant]
     Indication: PAIN
     Dosage: 7.2/325 MG
     Route: 048

REACTIONS (6)
  - ACCIDENTAL OVERDOSE [None]
  - HYPERSENSITIVITY [None]
  - LIP SWELLING [None]
  - OROPHARYNGEAL BLISTERING [None]
  - OROPHARYNGEAL PAIN [None]
  - TONGUE ULCERATION [None]
